FAERS Safety Report 7970453-0 (Version None)
Quarter: 2011Q4

REPORT INFORMATION
  Report Type: 
  Country: None (occurrence: None)
  Receive Date: 20111212
  Receipt Date: 20111201
  Transmission Date: 20120403
  Serious: Yes (Other)
  Sender: FDA-Public Use
  Company Number: PHEH2011US009753

PATIENT
  Sex: Male
  Weight: 76 kg

DRUGS (8)
  1. LANTUS [Concomitant]
     Route: 058
  2. LACTULOSE [Concomitant]
     Route: 048
  3. EXJADE [Suspect]
     Dosage: 1500 MG, QD
     Route: 048
  4. LASIX [Concomitant]
     Route: 048
  5. ALDACTONE [Concomitant]
     Route: 048
  6. NADOLOL [Concomitant]
     Route: 048
  7. XIFAXAN [Concomitant]
     Route: 048
  8. EXJADE [Suspect]
     Dosage: 500 MG, UNK
     Route: 048

REACTIONS (5)
  - MUSCLE SPASMS [None]
  - DIARRHOEA [None]
  - NAUSEA [None]
  - HEADACHE [None]
  - FATIGUE [None]
